FAERS Safety Report 18380929 (Version 1)
Quarter: 2020Q4

REPORT INFORMATION
  Report Type: Spontaneous
  Country: US (occurrence: US)
  Receive Date: 20201014
  Receipt Date: 20201014
  Transmission Date: 20210114
  Serious: No
  Sender: FDA-Public Use
  Company Number: US-BAUSCH-BL-2020-028972

PATIENT
  Age: 58 Year

DRUGS (1)
  1. XIFAXAN [Suspect]
     Active Substance: RIFAXIMIN
     Indication: PRODUCT USED FOR UNKNOWN INDICATION
     Route: 065

REACTIONS (4)
  - Urticaria [Unknown]
  - Pruritus [Unknown]
  - Rash [Unknown]
  - Burning sensation [Unknown]

NARRATIVE: CASE EVENT DATE: 202009
